FAERS Safety Report 5596000-9 (Version None)
Quarter: 2008Q1

REPORT INFORMATION
  Report Type: 
  Country: None (occurrence: None)
  Receive Date: 20080118
  Receipt Date: 20080107
  Transmission Date: 20080703
  Serious: Yes (Death, Other)
  Sender: FDA-Public Use
  Company Number: US-GENENTECH-218526

PATIENT
  Sex: Male
  Weight: 90 kg

DRUGS (1)
  1. RITUXIMAB [Suspect]
     Indication: GLOMERULONEPHRITIS MEMBRANOUS
     Dosage: 1 G, DAYS 1+15
     Route: 042

REACTIONS (2)
  - DEATH [None]
  - LUNG ADENOCARCINOMA [None]
